FAERS Safety Report 4471529-5 (Version None)
Quarter: 2004Q4

REPORT INFORMATION
  Report Type: 
  Country: None (occurrence: None)
  Receive Date: 20041012
  Receipt Date: 20040804
  Transmission Date: 20050328
  Serious: Yes (Life-Threatening, Hospitalization, Other)
  Sender: FDA-Public Use
  Company Number: PHBS2004JP10336

PATIENT
  Age: 4 Year
  Sex: Male
  Weight: 15 kg

DRUGS (1)
  1. AREDIA [Suspect]
     Indication: OSTEITIS DEFORMANS
     Dosage: 1 MG/KG/D
     Route: 042
     Dates: start: 20030617, end: 20030618

REACTIONS (9)
  - ALANINE AMINOTRANSFERASE INCREASED [None]
  - ASPARTATE AMINOTRANSFERASE INCREASED [None]
  - BLOOD LACTATE DEHYDROGENASE INCREASED [None]
  - BONE MARROW DEPRESSION [None]
  - PANCYTOPENIA [None]
  - PLATELET COUNT DECREASED [None]
  - PYREXIA [None]
  - VOMITING [None]
  - WHITE BLOOD CELL COUNT DECREASED [None]
